FAERS Safety Report 5290548-2 (Version None)
Quarter: 2007Q2

REPORT INFORMATION
  Report Type: 
  Country: None (occurrence: None)
  Receive Date: 20070409
  Receipt Date: 20070329
  Transmission Date: 20071010
  Serious: Yes (Other)
  Sender: FDA-Public Use
  Company Number: HQWYE451928JUN06

PATIENT
  Sex: Male
  Weight: 78.09 kg

DRUGS (10)
  1. RAPAMUNE [Suspect]
     Indication: LIVER TRANSPLANT
     Route: 048
     Dates: start: 20060201
  2. PRILOSEC [Concomitant]
  3. ASPIRIN [Concomitant]
  4. SULFAMETHOXAZOLE [Concomitant]
  5. PROZAC [Concomitant]
  6. IRON [Concomitant]
  7. FOLIC ACID [Concomitant]
  8. CALCIUM [Concomitant]
  9. CELLCEPT [Concomitant]
  10. GLUCOTROL [Concomitant]

REACTIONS (10)
  - CARDIAC FAILURE [None]
  - CEREBROVASCULAR ACCIDENT [None]
  - DEPRESSION [None]
  - EAR INFECTION [None]
  - FACE OEDEMA [None]
  - HAEMOGLOBIN DECREASED [None]
  - MACULAR OEDEMA [None]
  - TYMPANIC MEMBRANE PERFORATION [None]
  - VIRAL INFECTION [None]
  - VISION BLURRED [None]
